FAERS Safety Report 8172277-0 (Version None)
Quarter: 2012Q1

REPORT INFORMATION
  Report Type: 
  Country: None (occurrence: None)
  Receive Date: 20120229
  Receipt Date: 20120221
  Transmission Date: 20120608
  Serious: No
  Sender: FDA-Public Use
  Company Number: US-BIOGENIDEC-2011BI039866

PATIENT
  Age: 32 Year
  Sex: Female

DRUGS (1)
  1. TYSABRI [Suspect]
     Indication: MULTIPLE SCLEROSIS
     Route: 042
     Dates: start: 20100928

REACTIONS (6)
  - POST-TRAUMATIC NECK SYNDROME [None]
  - APHASIA [None]
  - COMMUNICATION DISORDER [None]
  - HEADACHE [None]
  - PAIN [None]
  - ROAD TRAFFIC ACCIDENT [None]
